FAERS Safety Report 7827225-7 (Version None)
Quarter: 2011Q4

REPORT INFORMATION
  Report Type: 
  Country: None (occurrence: None)
  Receive Date: 20111020
  Receipt Date: 20111018
  Transmission Date: 20120403
  Serious: Yes (Death, Hospitalization)
  Sender: FDA-Public Use
  Company Number: GB-GENZYME-CLOF-1000333

PATIENT
  Sex: Male

DRUGS (4)
  1. EVOLTRA [Suspect]
     Indication: ACUTE LEUKAEMIA
     Dosage: UNK
     Route: 065
     Dates: start: 20080923, end: 20080927
  2. EVOLTRA [Suspect]
     Dosage: CYCLE 2
     Route: 065
  3. DAUNORUBICIN HCL [Suspect]
     Dosage: CYCLE 2
     Route: 065
  4. DAUNORUBICIN HCL [Suspect]
     Indication: ACUTE LEUKAEMIA
     Dosage: UNK
     Route: 065
     Dates: start: 20080923, end: 20080927

REACTIONS (2)
  - NEUTROPENIC SEPSIS [None]
  - BONE MARROW FAILURE [None]
